FAERS Safety Report 23294305 (Version 2)
Quarter: 2024Q1

REPORT INFORMATION
  Report Type: Spontaneous
  Country: FR (occurrence: FR)
  Receive Date: 20231213
  Receipt Date: 20240304
  Transmission Date: 20240410
  Serious: Yes (Other)
  Sender: FDA-Public Use
  Company Number: FR-BEH-2023165546

PATIENT
  Sex: Male
  Weight: 68.5 kg

DRUGS (3)
  1. HUMAN IMMUNOGLOBULIN G [Suspect]
     Active Substance: HUMAN IMMUNOGLOBULIN G
     Indication: Lewis-Sumner syndrome
     Route: 042
  2. HIZENTRA [Suspect]
     Active Substance: HUMAN IMMUNOGLOBULIN G
     Indication: Polyneuropathy
     Dosage: 23 GRAM, Q.WK.
     Route: 058
     Dates: start: 202309
  3. PRIVIGEN [Suspect]
     Active Substance: HUMAN IMMUNOGLOBULIN G
     Indication: Lewis-Sumner syndrome
     Dosage: 135 GRAM
     Dates: start: 202205, end: 202309

REACTIONS (2)
  - Lewis-Sumner syndrome [Unknown]
  - Drug dependence [Unknown]
